FAERS Safety Report 8971701 (Version 2)
Quarter: 2013Q1

REPORT INFORMATION
  Report Type: Spontaneous
  Country: US (occurrence: US)
  Receive Date: 20121217
  Receipt Date: 20130319
  Transmission Date: 20140127
  Serious: Yes (Death)
  Sender: FDA-Public Use
  Company Number: US-BRISTOL-MYERS SQUIBB COMPANY-16928491

PATIENT
  Age: 36 Year
  Sex: Male
  Weight: 77 kg

DRUGS (3)
  1. ERBITUX [Suspect]
     Indication: NASOPHARYNGEAL CANCER
     Dosage: FIVE TREATMENTS
     Dates: start: 20120810
  2. TAXOL [Suspect]
     Indication: NASOPHARYNGEAL CANCER
  3. CISPLATIN [Suspect]
     Indication: NASOPHARYNGEAL CANCER

REACTIONS (3)
  - Malignant neoplasm progression [Fatal]
  - Rash [Unknown]
  - Stomatitis [Unknown]
